FAERS Safety Report 21945187 (Version 1)
Quarter: 2023Q1

REPORT INFORMATION
  Report Type: Spontaneous
  Country: DE (occurrence: DE)
  Receive Date: 20230202
  Receipt Date: 20230202
  Transmission Date: 20230418
  Serious: Yes (Other)
  Sender: FDA-Public Use
  Company Number: None

PATIENT
  Age: 60 Year
  Sex: Male

DRUGS (12)
  1. VENLAFAXINE [Suspect]
     Active Substance: VENLAFAXINE HYDROCHLORIDE
     Indication: Product used for unknown indication
     Dosage: 75 MILLIGRAM, QD
     Route: 048
     Dates: start: 20220511, end: 20220515
  2. VENLAFAXINE [Suspect]
     Active Substance: VENLAFAXINE HYDROCHLORIDE
     Dosage: 150 MILLIGRAM, QD
     Route: 048
     Dates: start: 20220516, end: 20220803
  3. VENLAFAXINE [Suspect]
     Active Substance: VENLAFAXINE HYDROCHLORIDE
     Dosage: 75 MILLIGRAM, QD
     Route: 048
     Dates: start: 20220804, end: 20220810
  4. VENLAFAXINE [Suspect]
     Active Substance: VENLAFAXINE HYDROCHLORIDE
     Dosage: 37.5 MILLIGRAM, QD
     Route: 048
     Dates: start: 20220811, end: 20220816
  5. VENLAFAXINE [Suspect]
     Active Substance: VENLAFAXINE HYDROCHLORIDE
     Dosage: 37.5 MILLIGRAM, QD
     Route: 048
     Dates: start: 20220902, end: 20220904
  6. VENLAFAXINE [Suspect]
     Active Substance: VENLAFAXINE HYDROCHLORIDE
     Dosage: 75 MILLIGRAM, QD
     Route: 048
     Dates: start: 20220905, end: 20220912
  7. VENLAFAXINE [Suspect]
     Active Substance: VENLAFAXINE HYDROCHLORIDE
     Dosage: B.A.W.150 MILLIGRAM, QD
     Route: 048
     Dates: start: 20220913
  8. VITAMIN D [Concomitant]
     Active Substance: VITAMIN D NOS
     Dosage: 1000 INTERNATIONAL UNIT, QD,B.A.W.
     Route: 048
     Dates: start: 20220501
  9. URSODIOL [Concomitant]
     Active Substance: URSODIOL
     Dosage: 1250 MILLIGRAM, QDY,B.A.W.
     Route: 048
     Dates: start: 20220501
  10. SPRAVATO [Concomitant]
     Active Substance: ESKETAMINE
     Dosage: 168 MILLIGRAM, QW
     Route: 045
     Dates: start: 20220511, end: 20220601
  11. SPRAVATO [Concomitant]
     Active Substance: ESKETAMINE
     Dosage: 168 MILLIGRAM, QW
     Route: 045
     Dates: start: 20220831, end: 20220916
  12. FOLIC ACID [Concomitant]
     Active Substance: FOLIC ACID
     Dosage: 5 MILLIGRAM, QD,B. A. W.
     Route: 048
     Dates: start: 20220501

REACTIONS (3)
  - Pollakiuria [Recovered/Resolved]
  - Abdominal pain lower [Recovered/Resolved]
  - Abdominal discomfort [Recovered/Resolved]

NARRATIVE: CASE EVENT DATE: 20220525
